FAERS Safety Report 9053997 (Version 1)
Quarter: 2013Q1

REPORT INFORMATION
  Report Type: Spontaneous
  Country: US (occurrence: None)
  Receive Date: 20130201
  Receipt Date: 20130201
  Transmission Date: 20140127
  Serious: Yes (Other)
  Sender: FDA-Public Use
  Company Number: None

PATIENT
  Sex: Female
  Weight: 55.5 kg

DRUGS (5)
  1. COPAXONE [Suspect]
     Indication: MULTIPLE SCLEROSIS
     Route: 058
     Dates: start: 201210
  2. PROVIGIL [Concomitant]
  3. CALCIUM SUPPLEMENTS [Concomitant]
  4. VITAMIN D SUPPLEMENT [Concomitant]
  5. MULTIVITAMIN [Concomitant]

REACTIONS (1)
  - Lymphadenopathy [None]
